FAERS Safety Report 7465415-6 (Version None)
Quarter: 2011Q2

REPORT INFORMATION
  Report Type: 
  Country: None (occurrence: None)
  Receive Date: 20110509
  Receipt Date: 20101103
  Transmission Date: 20111010
  Serious: No
  Sender: FDA-Public Use
  Company Number: US-BAUSCH-2010BL006285

PATIENT
  Age: 45 Year
  Sex: Female

DRUGS (2)
  1. LOTEMAX [Suspect]
     Indication: DRY EYE
     Route: 047
     Dates: start: 20101023, end: 20101023
  2. LOTEMAX [Suspect]
     Indication: EYE PRURITUS
     Route: 047
     Dates: start: 20101023, end: 20101023

REACTIONS (3)
  - HEADACHE [None]
  - DIZZINESS [None]
  - VOMITING [None]
